FAERS Safety Report 18675120 (Version 1)
Quarter: 2020Q4

REPORT INFORMATION
  Report Type: Spontaneous
  Country: US (occurrence: US)
  Receive Date: 20201228
  Receipt Date: 20201228
  Transmission Date: 20210114
  Serious: No
  Sender: FDA-Public Use
  Company Number: None

PATIENT
  Age: 63 Year
  Sex: Female

DRUGS (10)
  1. TRAMADOL 50MG [Concomitant]
     Active Substance: TRAMADOL
     Dates: start: 20200504
  2. PERCOCET [Concomitant]
     Active Substance: ACETAMINOPHEN\OXYCODONE HYDROCHLORIDE
     Dates: start: 20200504
  3. VITAMIN B12 [Concomitant]
     Active Substance: CYANOCOBALAMIN
     Dates: start: 20200504
  4. VITAMIN D [Concomitant]
     Active Substance: VITAMIN D NOS
     Dates: start: 20200504
  5. MAGNESIUM [Concomitant]
     Active Substance: MAGNESIUM
     Dates: start: 20200504
  6. TAGRISSO [Suspect]
     Active Substance: OSIMERTINIB
     Indication: LUNG NEOPLASM MALIGNANT
     Route: 048
     Dates: start: 20200504
  7. ATENOLOL. [Concomitant]
     Active Substance: ATENOLOL
     Dates: start: 20200504
  8. VITAMIN C [Concomitant]
     Active Substance: ASCORBIC ACID
     Dates: start: 20200504
  9. ZINC. [Concomitant]
     Active Substance: ZINC
     Dates: start: 20200504
  10. ZYRTEC [Concomitant]
     Active Substance: CETIRIZINE HYDROCHLORIDE
     Dates: start: 20200504

REACTIONS (6)
  - Dry skin [None]
  - Skin fissures [None]
  - Onychoclasis [None]
  - Pain [None]
  - Chapped lips [None]
  - Lip haemorrhage [None]

NARRATIVE: CASE EVENT DATE: 20201203
